FAERS Safety Report 5148401-0 (Version None)
Quarter: 2006Q4

REPORT INFORMATION
  Report Type: 
  Country: None (occurrence: None)
  Receive Date: 20061110
  Receipt Date: 20061103
  Transmission Date: 20070319
  Serious: Yes (Hospitalization)
  Sender: FDA-Public Use
  Company Number: DE-MERCK-0611DEU00016

PATIENT
  Sex: Female

DRUGS (3)
  1. EMEND [Suspect]
     Indication: PROPHYLAXIS OF NAUSEA AND VOMITING
     Route: 048
     Dates: start: 20061001, end: 20061001
  2. EMEND [Suspect]
     Route: 048
     Dates: start: 20061001, end: 20061001
  3. ANTINEOPLASTIC (UNSPECIFIED) [Concomitant]
     Indication: BREAST CANCER
     Route: 065

REACTIONS (1)
  - CONVULSION [None]
